FAERS Safety Report 6843634-7 (Version None)
Quarter: 2010Q3

REPORT INFORMATION
  Report Type: 
  Country: None (occurrence: None)
  Receive Date: 20100712
  Receipt Date: 20100706
  Transmission Date: 20110219
  Serious: Yes (Life-Threatening, Disabling, Other)
  Sender: FDA-Public Use
  Company Number: 2009SP033235

PATIENT
  Age: 25 Year
  Sex: Female
  Weight: 71 kg

DRUGS (2)
  1. IMPLANON [Suspect]
     Indication: CONTRACEPTION
     Dosage: ;SC
     Route: 058
     Dates: start: 20090507, end: 20090924
  2. FEMODENE [Concomitant]

REACTIONS (6)
  - ANXIETY [None]
  - BLOOD CREATINE PHOSPHOKINASE INCREASED [None]
  - HYPOTHYROIDISM [None]
  - MYALGIA [None]
  - MYXOEDEMA [None]
  - OEDEMA PERIPHERAL [None]
